FAERS Safety Report 6962315-2 (Version None)
Quarter: 2010Q3

REPORT INFORMATION
  Report Type: 
  Country: None (occurrence: None)
  Receive Date: 20100902
  Receipt Date: 20100820
  Transmission Date: 20110219
  Serious: Yes (Hospitalization)
  Sender: FDA-Public Use
  Company Number: FR-ELI_LILLY_AND_COMPANY-FR201008005697

PATIENT
  Sex: Female

DRUGS (7)
  1. PROZAC [Suspect]
     Dosage: UNK, UNKNOWN
     Route: 048
     Dates: start: 20030101
  2. LYTOS [Concomitant]
     Dosage: UNK, UNKNOWN
     Route: 065
  3. RIMIFON [Concomitant]
     Dosage: UNK, UNKNOWN
     Route: 048
  4. BENDAMUSTINE [Concomitant]
     Indication: MULTIPLE MYELOMA
     Dosage: 110 MG, ON DAY 1 AND 2 EVERY 28 DAYS
     Route: 065
     Dates: start: 20100114
  5. ZOPHREN [Concomitant]
     Dosage: UNK, ON DAY 1 AND 2 EVERY 28 DAYS
  6. SOLU-MEDROL [Concomitant]
     Dosage: 100 MG, ON DAY 1 AND 2 EVERY 28 DAYS
     Dates: start: 20100114
  7. SOLUPRED [Concomitant]
     Dosage: 100 MG, ON DAY 3 AND 5 EVERY 28 DAYS

REACTIONS (5)
  - BRONCHITIS [None]
  - CARBON MONOXIDE DIFFUSING CAPACITY DECREASED [None]
  - COUGH [None]
  - DYSPNOEA [None]
  - HYPERTHERMIA [None]
